FAERS Safety Report 6356594-2 (Version None)
Quarter: 2009Q3

REPORT INFORMATION
  Report Type: 
  Country: None (occurrence: None)
  Receive Date: 20090915
  Receipt Date: 20090831
  Transmission Date: 20100115
  Serious: Yes (Other)
  Sender: FDA-Public Use
  Company Number: CA-GENENTECH-290212

PATIENT
  Sex: Male

DRUGS (2)
  1. XOLAIR [Suspect]
     Indication: ASTHMA
     Dosage: 225 MG, UNK
     Route: 058
     Dates: start: 20090508
  2. XOLAIR [Suspect]
     Dosage: 225 MG, UNK
     Route: 058
     Dates: start: 20090805

REACTIONS (2)
  - ASTHMA [None]
  - INFECTION [None]
